FAERS Safety Report 25313990 (Version 1)
Quarter: 2025Q2

REPORT INFORMATION
  Report Type: Spontaneous
  Country: US (occurrence: None)
  Receive Date: 20250514
  Receipt Date: 20250514
  Transmission Date: 20250717
  Serious: Yes (Other)
  Sender: FDA-CTU
  Company Number: None

PATIENT
  Age: 80 Year
  Sex: Female
  Weight: 67 kg

DRUGS (1)
  1. TPN [Suspect]
     Active Substance: AMINO ACIDS\DEXTROSE\ELECTROLYTES NOS\SOYBEAN OIL
     Indication: Parenteral nutrition
     Dosage: DAILY INTRAVENOUS DRIP
     Route: 041
     Dates: start: 20250508, end: 20250508

REACTIONS (4)
  - Chills [None]
  - Back pain [None]
  - Therapy interrupted [None]
  - Product formulation issue [None]

NARRATIVE: CASE EVENT DATE: 20250508
